FAERS Safety Report 8586180-5 (Version None)
Quarter: 2012Q3

REPORT INFORMATION
  Report Type: 
  Country: None (occurrence: None)
  Receive Date: 20120810
  Receipt Date: 20120801
  Transmission Date: 20120928
  Serious: Yes (Hospitalization)
  Sender: FDA-Public Use
  Company Number: FR-GLAXOSMITHKLINE-B0819675A

PATIENT
  Sex: Male
  Weight: 64 kg

DRUGS (7)
  1. DIGOXIN [Concomitant]
     Dosage: 1TAB PER DAY
     Route: 048
  2. LASILIX 40 MG [Concomitant]
     Dosage: 1TAB PER DAY
     Route: 048
  3. PREVISCAN [Concomitant]
     Indication: ATRIAL FIBRILLATION
     Dates: end: 20120701
  4. LASIX [Concomitant]
     Dosage: .25TAB PER DAY
     Route: 048
  5. ARIXTRA [Suspect]
     Indication: ATRIAL FIBRILLATION
     Dosage: 7.5MG PER DAY
     Route: 058
     Dates: start: 20120711, end: 20120718
  6. CARVEDILOL [Concomitant]
     Dosage: 2TAB PER DAY
     Route: 048
  7. ALDACTONE [Concomitant]

REACTIONS (1)
  - THROMBOCYTOPENIA [None]
